FAERS Safety Report 7278381-3 (Version None)
Quarter: 2011Q1

REPORT INFORMATION
  Report Type: 
  Country: None (occurrence: None)
  Receive Date: 20110207
  Receipt Date: 20110126
  Transmission Date: 20110831
  Serious: Yes (Hospitalization, Other)
  Sender: FDA-Public Use
  Company Number: US-MERCK-1008USA04024

PATIENT
  Age: 74 Year
  Sex: Female

DRUGS (1)
  1. FOSAMAX [Suspect]
     Indication: OSTEOPENIA
     Route: 048
     Dates: start: 20030101, end: 20110101

REACTIONS (20)
  - COUGH [None]
  - NAUSEA [None]
  - MUSCLE SPASMS [None]
  - CONSTIPATION [None]
  - FOOT FRACTURE [None]
  - ASTHMA [None]
  - ANXIETY [None]
  - GASTROOESOPHAGEAL REFLUX DISEASE [None]
  - HYPERSENSITIVITY [None]
  - FUNGAL INFECTION [None]
  - DIARRHOEA [None]
  - FEMUR FRACTURE [None]
  - BREAST CANCER [None]
  - HYPERTENSION [None]
  - VIRAL INFECTION [None]
  - URINARY TRACT INFECTION [None]
  - PAIN [None]
  - URINARY INCONTINENCE [None]
  - ARTHRITIS [None]
  - INFECTION [None]
